FAERS Safety Report 11984413 (Version 1)
Quarter: 2016Q1

REPORT INFORMATION
  Report Type: Spontaneous
  Country: US (occurrence: US)
  Receive Date: 20160201
  Receipt Date: 20160201
  Transmission Date: 20160526
  Serious: No
  Sender: FDA-Public Use
  Company Number: US-KADMON PHARMACEUTICALS, LLC-KAD201506-001614

PATIENT
  Age: 49 Year
  Sex: Male

DRUGS (1)
  1. RIBASPHERE [Suspect]
     Active Substance: RIBAVIRIN
     Indication: HEPATITIS C
     Dosage: TABLET; 200 MG; THREE TABLETS TWICE A DAY WITH FOOD
     Route: 048
     Dates: start: 20150529

REACTIONS (5)
  - Condition aggravated [Unknown]
  - Diarrhoea [Unknown]
  - Headache [Unknown]
  - Abdominal discomfort [Unknown]
  - Fatigue [Unknown]
